FAERS Safety Report 25388860 (Version 1)
Quarter: 2025Q2

REPORT INFORMATION
  Report Type: Spontaneous
  Country: US (occurrence: US)
  Receive Date: 20250603
  Receipt Date: 20250603
  Transmission Date: 20250716
  Serious: Yes (Other)
  Sender: ZYDUS PHARM
  Company Number: US-CADILA HEALTHCARE LIMITED-US-ZYDUS-124111

PATIENT

DRUGS (3)
  1. LENALIDOMIDE [Suspect]
     Active Substance: LENALIDOMIDE
     Indication: B-cell lymphoma
     Route: 048
     Dates: start: 202412
  2. LENALIDOMIDE [Suspect]
     Active Substance: LENALIDOMIDE
     Indication: Off label use
  3. LENALIDOMIDE [Suspect]
     Active Substance: LENALIDOMIDE
     Indication: Follicular lymphoma

REACTIONS (1)
  - Neutropenia [Unknown]
